FAERS Safety Report 4376344-9 (Version None)
Quarter: 2004Q2

REPORT INFORMATION
  Report Type: 
  Country: None (occurrence: None)
  Receive Date: 20040602
  Receipt Date: 20030917
  Transmission Date: 20050107
  Serious: Yes (Hospitalization)
  Sender: FDA-Public Use
  Company Number: US-JNJFOC- 20030904197

PATIENT
  Age: 25 Year
  Sex: Female

DRUGS (7)
  1. SPORANOX [Suspect]
     Indication: HISTOPLASMOSIS
     Dosage: 200 MG, 2 IN 1 DAY, ORAL
     Route: 048
     Dates: end: 20030501
  2. SPORANOX [Suspect]
     Indication: HISTOPLASMOSIS
     Dosage: 200 MG, 2 IN 1 DAY, ORAL
     Route: 048
     Dates: start: 20030501
  3. REMERON [Concomitant]
  4. PROZAC [Concomitant]
  5. KLONOPIN [Concomitant]
  6. ZANAFLEX [Concomitant]
  7. TRIPHASIL (EUGYNON) [Concomitant]

REACTIONS (2)
  - NAUSEA [None]
  - VOMITING [None]
